FAERS Safety Report 24093035 (Version 1)
Quarter: 2024Q3

REPORT INFORMATION
  Report Type: Spontaneous
  Country: US (occurrence: US)
  Receive Date: 20240715
  Receipt Date: 20240715
  Transmission Date: 20241017
  Serious: Yes (Other)
  Sender: PERRIGO
  Company Number: US-PERRIGO-24US006572

PATIENT
  Age: 43 Year

DRUGS (2)
  1. UNISOM SLEEPTABS [Suspect]
     Active Substance: DOXYLAMINE SUCCINATE
     Indication: Product used for unknown indication
     Dosage: UNKNOWN, UNKNOWN
     Route: 048
     Dates: start: 202308
  2. UNISOM SLEEPTABS [Suspect]
     Active Substance: DOXYLAMINE SUCCINATE
     Dosage: UNKNOWN, UNKNOWN
     Route: 048
     Dates: start: 20240113

REACTIONS (10)
  - Seizure [Unknown]
  - Confusional state [Unknown]
  - Disorientation [Unknown]
  - Tongue injury [Unknown]
  - Headache [Unknown]
  - Clavicle fracture [Unknown]
  - Back pain [Unknown]
  - Pain in extremity [Unknown]
  - Arthralgia [Unknown]
  - Amnesia [Unknown]

NARRATIVE: CASE EVENT DATE: 20230807
